FAERS Safety Report 22004722 (Version 1)
Quarter: 2023Q1

REPORT INFORMATION
  Report Type: Spontaneous
  Country: US (occurrence: None)
  Receive Date: 20230216
  Receipt Date: 20230216
  Transmission Date: 20230418
  Serious: Yes (Disabling)
  Sender: FDA-Public Use
  Company Number: None

PATIENT
  Age: 34 Year
  Sex: Female
  Weight: 71.67 kg

DRUGS (3)
  1. OZEMPIC [Suspect]
     Active Substance: SEMAGLUTIDE
     Indication: Diabetes mellitus
     Dates: start: 20230128, end: 20230204
  2. LINEZOLID [Suspect]
     Active Substance: LINEZOLID
  3. METHYLENE BLUE [Suspect]
     Active Substance: METHYLENE BLUE

REACTIONS (6)
  - Product contamination [None]
  - Photosensitivity reaction [None]
  - Fatigue [None]
  - Dizziness [None]
  - Nausea [None]
  - Dyspnoea [None]

NARRATIVE: CASE EVENT DATE: 20230128
